FAERS Safety Report 6442878-6 (Version None)
Quarter: 2009Q4

REPORT INFORMATION
  Report Type: 
  Country: None (occurrence: None)
  Receive Date: 20091117
  Receipt Date: 20091110
  Transmission Date: 20100525
  Serious: Yes (Other)
  Sender: FDA-Public Use
  Company Number: DE-BRISTOL-MYERS SQUIBB COMPANY-14851406

PATIENT

DRUGS (3)
  1. REYATAZ [Suspect]
  2. TRIAMCINOLONE ACETONIDE [Interacting]
     Dosage: INJECTION
  3. NORVIR [Interacting]

REACTIONS (2)
  - CUSHING'S SYNDROME [None]
  - DRUG INTERACTION [None]
